FAERS Safety Report 5395518-1 (Version None)
Quarter: 2007Q3

REPORT INFORMATION
  Report Type: 
  Country: None (occurrence: None)
  Receive Date: 20070724
  Receipt Date: 20070719
  Transmission Date: 20080115
  Serious: Yes (Hospitalization)
  Sender: FDA-Public Use
  Company Number: US-GENENTECH-243640

PATIENT
  Sex: Female
  Weight: 68.027 kg

DRUGS (7)
  1. BEVACIZUMAB [Suspect]
     Indication: NON-SMALL CELL LUNG CANCER
     Dosage: 15 MG/KG, Q3W
     Route: 042
     Dates: start: 20070221
  2. ALIMTA [Suspect]
     Indication: NON-SMALL CELL LUNG CANCER
     Dosage: 400 MG/M2, Q3W
     Route: 042
     Dates: start: 20070221
  3. CARBOPLATIN [Suspect]
     Indication: NON-SMALL CELL LUNG CANCER
     Dosage: 5 AUC, Q3W
     Route: 042
     Dates: start: 20070221
  4. CARBOPLATIN [Suspect]
     Dosage: 6 AUC, UNK
     Route: 042
  5. RADIATION [Concomitant]
     Indication: NON-SMALL CELL LUNG CANCER
     Dosage: 53 GY, UNK
     Dates: start: 20070221
  6. B12 COMPLEX [Concomitant]
     Indication: DRUG USE FOR UNKNOWN INDICATION
     Dosage: 1000 MG, UNK
     Dates: start: 20070213
  7. FOLIC ACID [Concomitant]
     Indication: DRUG USE FOR UNKNOWN INDICATION
     Dosage: 1000 A?G, QD
     Dates: start: 20070213

REACTIONS (5)
  - ANAEMIA [None]
  - ASTHENIA [None]
  - DEHYDRATION [None]
  - DIZZINESS [None]
  - HYPOKALAEMIA [None]
